FAERS Safety Report 18565111 (Version 2)
Quarter: 2020Q4

REPORT INFORMATION
  Report Type: Spontaneous
  Country: US (occurrence: US)
  Receive Date: 20201201
  Receipt Date: 20201203
  Transmission Date: 20210114
  Serious: No
  Sender: FDA-Public Use
  Company Number: US-PHARMALEX A.R.C.-2096496

PATIENT
  Sex: Male

DRUGS (5)
  1. LUMOXITI [Suspect]
     Active Substance: MOXETUMOMAB PASUDOTOX-TDFK
     Indication: HAIRY CELL LEUKAEMIA
     Route: 042
     Dates: start: 20201102, end: 20201106
  2. ZARXIO [Concomitant]
     Active Substance: FILGRASTIM-SNDZ
     Route: 058
  3. BENADRYL [Concomitant]
     Active Substance: DIPHENHYDRAMINE HYDROCHLORIDE
     Route: 042
     Dates: start: 20201102, end: 20201106
  4. TYLENOL [Concomitant]
     Active Substance: ACETAMINOPHEN
     Route: 048
     Dates: start: 20201102, end: 20201106
  5. PEPCID [Concomitant]
     Active Substance: FAMOTIDINE
     Route: 042
     Dates: start: 20201102, end: 20201106

REACTIONS (1)
  - Rash [Recovered/Resolved]

NARRATIVE: CASE EVENT DATE: 20201112
